FAERS Safety Report 5118295-8 (Version None)
Quarter: 2006Q4

REPORT INFORMATION
  Report Type: 
  Country: None (occurrence: None)
  Receive Date: 20061002
  Receipt Date: 20060822
  Transmission Date: 20070319
  Serious: No
  Sender: FDA-Public Use
  Company Number: US-BRISTOL-MYERS SQUIBB COMPANY-13485339

PATIENT
  Sex: Female
  Weight: 54 kg

DRUGS (8)
  1. ORENCIA [Suspect]
     Route: 042
     Dates: start: 20060821, end: 20060821
  2. BENADRYL [Concomitant]
     Dates: start: 20060821, end: 20060821
  3. TRAMADOL HCL [Concomitant]
  4. PLAQUENIL [Concomitant]
  5. ELAVIL [Concomitant]
  6. CENTRUM FORTE [Concomitant]
  7. CALCIUM + VITAMIN D [Concomitant]
  8. MIRCETTE [Concomitant]

REACTIONS (6)
  - ARTHRITIS [None]
  - DYSPNOEA [None]
  - FEELING HOT [None]
  - HEADACHE [None]
  - HYPERHIDROSIS [None]
  - PYREXIA [None]
